FAERS Safety Report 19460585 (Version 2)
Quarter: 2021Q2

REPORT INFORMATION
  Report Type: Spontaneous
  Country: CN (occurrence: CN)
  Receive Date: 20210625
  Receipt Date: 20210628
  Transmission Date: 20210717
  Serious: Yes (Other)
  Sender: FDA-Public Use
  Company Number: CN-JNJFOC-20210643594

PATIENT

DRUGS (1)
  1. IBUPROFEN. [Suspect]
     Active Substance: IBUPROFEN
     Indication: PATENT DUCTUS ARTERIOSUS
     Route: 065

REACTIONS (10)
  - Pulmonary hypoplasia [Unknown]
  - Gastrointestinal haemorrhage [Unknown]
  - Pulmonary haemorrhage [Unknown]
  - Hepatic failure [Unknown]
  - Off label use [Unknown]
  - Infection [Unknown]
  - Product use in unapproved indication [Unknown]
  - Bronchial dysplasia [Unknown]
  - Renal failure [Unknown]
  - Therapeutic response unexpected [Unknown]
